FAERS Safety Report 8907455 (Version 1)
Quarter: 2012Q4

REPORT INFORMATION
  Report Type: 
  Country: BR (occurrence: BR)
  Receive Date: 20121114
  Receipt Date: 20121114
  Transmission Date: 20130627
  Serious: Yes (Other)
  Sender: FDA-Public Use
  Company Number: BR-ABBOTT-12P-020-1005691-00

PATIENT
  Sex: Male
  Weight: 79 kg

DRUGS (3)
  1. HUMIRA [Suspect]
     Indication: CROHN^S DISEASE
     Route: 058
  2. AZATHIOPRINE [Concomitant]
     Indication: CROHN^S DISEASE
     Dosage: In the morning
     Route: 048
  3. AZATHIOPRINE [Concomitant]
     Dosage: In the morning
     Route: 048

REACTIONS (2)
  - Anal fistula [Recovered/Resolved]
  - Drug ineffective [Not Recovered/Not Resolved]
